FAERS Safety Report 5238813-9 (Version None)
Quarter: 2007Q1

REPORT INFORMATION
  Report Type: 
  Country: None (occurrence: None)
  Receive Date: 20070215
  Receipt Date: 20070208
  Transmission Date: 20070707
  Serious: Yes (Hospitalization)
  Sender: FDA-Public Use
  Company Number: GB-ABBOTT-07P-167-0358721-00

PATIENT
  Sex: Female
  Weight: 90 kg

DRUGS (6)
  1. SIBUTRAMINE [Suspect]
     Indication: WEIGHT CONTROL
     Dates: start: 20070109, end: 20070122
  2. PNEUMOCOCCAL VACCINE [Suspect]
     Indication: DRUG USE FOR UNKNOWN INDICATION
  3. TRIMIPRAMINE MALEATE [Concomitant]
     Indication: DEPRESSION
     Dates: end: 20070121
  4. METFORMIN HCL [Concomitant]
     Indication: DIABETES MELLITUS
  5. AMINOPHYLLINE [Concomitant]
     Indication: CHRONIC OBSTRUCTIVE PULMONARY DISEASE
  6. TAMOXIFEN CITRATE [Concomitant]
     Indication: BREAST CANCER

REACTIONS (1)
  - VASCULITIC RASH [None]
